FAERS Safety Report 7113899-5 (Version None)
Quarter: 2010Q4

REPORT INFORMATION
  Report Type: 
  Country: None (occurrence: None)
  Receive Date: 20101119
  Receipt Date: 20101110
  Transmission Date: 20110411
  Serious: Yes (Death, Life-Threatening, Other)
  Sender: FDA-Public Use
  Company Number: NL-GENZYME-CLOF-1001313

PATIENT
  Sex: Male
  Weight: 66 kg

DRUGS (7)
  1. EVOLTRA [Suspect]
     Indication: ACUTE LEUKAEMIA
     Dosage: 27 MG, QDX5
     Route: 042
     Dates: start: 20101028, end: 20101101
  2. AMSACRINE [Suspect]
     Indication: ACUTE LEUKAEMIA
     Dosage: 215 MG, QDX3
     Route: 042
     Dates: start: 20101031, end: 20101102
  3. CYTARABINE [Suspect]
     Indication: ACUTE LEUKAEMIA
     Dosage: 1800 MG, QD
     Route: 042
     Dates: start: 20101028, end: 20101102
  4. ASCAL [Concomitant]
     Indication: CARDIAC DISORDER
     Dosage: 100 MG, UNK
     Route: 048
     Dates: start: 20101026, end: 20101107
  5. METFORMIN HCL [Concomitant]
     Indication: DIABETES MELLITUS
     Dosage: 500 MG, UNK
     Route: 048
     Dates: start: 20100922, end: 20101107
  6. METOPROLOL [Concomitant]
     Indication: CARDIAC DISORDER
     Dosage: 100 MG, UNK
     Route: 048
     Dates: start: 20100723, end: 20101107
  7. SIMVASTATIN [Concomitant]
     Indication: CARDIAC DISORDER
     Dosage: 20 MG, UNK
     Route: 048
     Dates: start: 20100723, end: 20101107

REACTIONS (7)
  - CARDIAC ARREST [None]
  - MULTI-ORGAN FAILURE [None]
  - NEUTROPENIA [None]
  - PYREXIA [None]
  - RENAL FAILURE ACUTE [None]
  - RESPIRATORY FAILURE [None]
  - STREPTOCOCCAL BACTERAEMIA [None]
